FAERS Safety Report 8171711-X (Version None)
Quarter: 2012Q1

REPORT INFORMATION
  Report Type: 
  Country: None (occurrence: None)
  Receive Date: 20120228
  Receipt Date: 20120221
  Transmission Date: 20120608
  Serious: Yes (Hospitalization)
  Sender: FDA-Public Use
  Company Number: JP-ABBOTT-11P-087-0717332-00

PATIENT
  Age: 34 Year
  Sex: Female

DRUGS (12)
  1. ASCOMP [Suspect]
     Indication: PYREXIA
     Route: 048
     Dates: start: 20110117, end: 20110127
  2. PZC [Concomitant]
     Indication: PRODUCT USED FOR UNKNOWN INDICATION
  3. SERTRALINE HYDROCHLORIDE [Concomitant]
     Indication: PRODUCT USED FOR UNKNOWN INDICATION
  4. LEVOFLOXACIN [Concomitant]
     Indication: PRODUCT USED FOR UNKNOWN INDICATION
     Route: 048
     Dates: start: 20120117
  5. CLARITHROMYCIN [Suspect]
     Indication: PYREXIA
     Route: 048
     Dates: start: 20110124, end: 20110127
  6. ASCOMP [Suspect]
     Indication: LYMPHADENOPATHY
  7. IBRUPROFEN [Suspect]
     Indication: PYREXIA
     Route: 048
     Dates: start: 20110124, end: 20110127
  8. LAMICTAL [Suspect]
     Indication: EPILEPSY
     Route: 048
  9. FLOMAX [Concomitant]
     Indication: PRODUCT USED FOR UNKNOWN INDICATION
     Route: 048
     Dates: start: 20110113, end: 20110115
  10. IBRUPROFEN [Suspect]
     Indication: LYMPHADENOPATHY
  11. CLARITHROMYCIN [Suspect]
     Indication: LYMPHADENOPATHY
  12. RIZE [Concomitant]
     Indication: PRODUCT USED FOR UNKNOWN INDICATION

REACTIONS (2)
  - ERYTHEMA [None]
  - VIRAL INFECTION [None]
